FAERS Safety Report 15058352 (Version 1)
Quarter: 2018Q2

REPORT INFORMATION
  Report Type: Other
  Country: CA (occurrence: CA)
  Receive Date: 20180625
  Receipt Date: 20180625
  Transmission Date: 20180711
  Serious: Yes (Life-Threatening, Other)
  Sender: FDA-Public Use
  Company Number: CA-DENTSPLY-2018SCDP000239

PATIENT

DRUGS (1)
  1. LIDOCAINE. [Suspect]
     Active Substance: LIDOCAINE
     Indication: CEREBROSPINAL FLUID LEAKAGE
     Dosage: UNK, INFILTRATION

REACTIONS (2)
  - Respiratory failure [Unknown]
  - Anaesthetic complication neurological [Unknown]
